FAERS Safety Report 20351598 (Version 2)
Quarter: 2022Q1

REPORT INFORMATION
  Report Type: Spontaneous
  Country: JP (occurrence: None)
  Receive Date: 20220119
  Receipt Date: 20220128
  Transmission Date: 20220423
  Serious: Yes (Hospitalization)
  Sender: FDA-Public Use
  Company Number: 2022A023069

PATIENT
  Age: 83 Year
  Sex: Female

DRUGS (5)
  1. LOKELMA [Suspect]
     Active Substance: SODIUM ZIRCONIUM CYCLOSILICATE
     Dosage: DOSE UNKNOWN
     Route: 048
  2. TELMISARTAN [Concomitant]
     Active Substance: TELMISARTAN
     Dosage: DOSE UNKNOWN
     Route: 065
  3. SODIUM FERROUS CITRATE [Concomitant]
     Active Substance: SODIUM FERROUS CITRATE
     Dosage: DOSE UNKNOWN
     Route: 065
  4. ALFAROL [Concomitant]
     Active Substance: ALFACALCIDOL
     Dosage: DOSE UNKNOWN
     Route: 065
  5. SODIUM BICARBONATE [Concomitant]
     Active Substance: SODIUM BICARBONATE
     Dosage: DOSE UNKNOWN
     Route: 065

REACTIONS (2)
  - Enteritis infectious [Unknown]
  - Computerised tomogram abnormal [Unknown]

NARRATIVE: CASE EVENT DATE: 20220111
